FAERS Safety Report 5162932-9 (Version None)
Quarter: 2006Q4

REPORT INFORMATION
  Report Type: 
  Country: None (occurrence: None)
  Receive Date: 20061201
  Receipt Date: 20020905
  Transmission Date: 20070319
  Serious: Yes (Death, Hospitalization)
  Sender: FDA-Public Use
  Company Number: FR-SANOFI-SYNTHELABO-A02200201284

PATIENT
  Sex: Male
  Weight: 52 kg

DRUGS (16)
  1. KAYEXALATE [Suspect]
     Indication: HYPERKALAEMIA
     Route: 048
     Dates: start: 20000401, end: 20000501
  2. KAYEXALATE [Suspect]
     Route: 048
     Dates: start: 20000501, end: 20010501
  3. KAYEXALATE [Suspect]
     Dosage: 30 G
     Route: 048
     Dates: start: 20010501, end: 20010801
  4. HYDROXIDE D'ALUMINE [Concomitant]
     Dosage: 2 G
     Route: 048
  5. NOCTRAN [Concomitant]
     Dosage: 20 MG
     Route: 048
  6. BRONILIDE [Concomitant]
     Dosage: 4 UNIT
     Route: 055
  7. SEREVENT [Concomitant]
     Dosage: 4 UNIT
     Route: 055
  8. ATARAX [Concomitant]
     Dosage: 100 MG
     Route: 048
  9. MEDROL [Concomitant]
     Dosage: 12 MG
     Route: 048
     Dates: start: 19940914
  10. CYTOTEC [Concomitant]
     Route: 048
  11. GARDENAL [Concomitant]
     Route: 048
  12. FLUNITRAZEPAM [Concomitant]
     Dosage: UNK
     Route: 065
  13. FUROSEMIDE [Concomitant]
     Dosage: UNK
     Route: 065
  14. ERYTHROPOIETINE [Concomitant]
     Dosage: UNK
     Route: 065
  15. CALCIUM CITRATE [Concomitant]
     Dosage: UNK
     Route: 065
  16. COLECALCIFEROL [Concomitant]
     Dosage: UNK
     Route: 065

REACTIONS (10)
  - COLITIS ISCHAEMIC [None]
  - FUNGAL INFECTION [None]
  - GASTROINTESTINAL NECROSIS [None]
  - HAEMOGLOBIN DECREASED [None]
  - LARGE INTESTINE PERFORATION [None]
  - MULTI-ORGAN FAILURE [None]
  - PERITONEAL HAEMORRHAGE [None]
  - PSEUDOMONAS INFECTION [None]
  - SEPTIC SHOCK [None]
  - SIGMOIDITIS [None]
